FAERS Safety Report 7525618-9 (Version None)
Quarter: 2011Q2

REPORT INFORMATION
  Report Type: 
  Country: None (occurrence: None)
  Receive Date: 20110606
  Receipt Date: 20110523
  Transmission Date: 20111010
  Serious: Yes (Other)
  Sender: FDA-Public Use
  Company Number: PHEH2006US11225

PATIENT
  Sex: Male
  Weight: 83.447 kg

DRUGS (14)
  1. ACIPHEX [Concomitant]
  2. INSULIN [Concomitant]
  3. ASPIRIN [Concomitant]
  4. METFORMIN HCL [Concomitant]
  5. NORVASC [Concomitant]
  6. RESTORIL [Concomitant]
  7. AVANDIA [Concomitant]
  8. VASOTEC [Concomitant]
  9. ZOCOR [Concomitant]
  10. FELODIPINE [Concomitant]
  11. ZOMETA [Suspect]
  12. DIOVAN [Concomitant]
  13. AREDIA [Suspect]
  14. PLAVIX [Concomitant]

REACTIONS (26)
  - MULTIPLE MYELOMA [None]
  - TYPE 1 DIABETES MELLITUS [None]
  - HYPERTENSION [None]
  - PULMONARY VALVE INCOMPETENCE [None]
  - SYNCOPE [None]
  - PAIN [None]
  - ARTERIOSCLEROSIS [None]
  - MYOCARDIAL INFARCTION [None]
  - ANXIETY [None]
  - DECREASED INTEREST [None]
  - ISCHAEMIA [None]
  - AORTIC VALVE INCOMPETENCE [None]
  - GENERAL PHYSICAL HEALTH DETERIORATION [None]
  - HYPERLIPIDAEMIA [None]
  - DYSPNOEA EXERTIONAL [None]
  - CHRONIC OBSTRUCTIVE PULMONARY DISEASE [None]
  - OSTEONECROSIS OF JAW [None]
  - ANGINA PECTORIS [None]
  - MITRAL VALVE INCOMPETENCE [None]
  - CORONARY ARTERY DISEASE [None]
  - TRICUSPID VALVE INCOMPETENCE [None]
  - LEFT VENTRICULAR HYPERTROPHY [None]
  - DIZZINESS [None]
  - BRONCHITIS CHRONIC [None]
  - PLEURAL FIBROSIS [None]
  - GASTROOESOPHAGEAL REFLUX DISEASE [None]
